FAERS Safety Report 10873622 (Version 2)
Quarter: 2015Q1

REPORT INFORMATION
  Report Type: Spontaneous
  Country: DE (occurrence: DE)
  Receive Date: 20150227
  Receipt Date: 20150227
  Transmission Date: 20150721
  Serious: Yes (Other)
  Sender: FDA-Public Use
  Company Number: DE-JNJFOC-20150121828

PATIENT
  Age: 68 Year

DRUGS (5)
  1. ACEMETACIN [Concomitant]
     Active Substance: ACEMETACIN
     Indication: POLYARTHRITIS
     Route: 048
  2. PREDNISOLONE. [Concomitant]
     Active Substance: PREDNISOLONE
     Route: 065
  3. XARELTO [Suspect]
     Active Substance: RIVAROXABAN
     Indication: ATRIAL FIBRILLATION
     Dosage: 20MG, QD, TWO TO THREE MONTHS.
     Route: 048
     Dates: start: 201409, end: 20150105
  4. CANDESARTAN CILEXETIL AND HYDROCHLOROTHIAZIDE [Concomitant]
     Active Substance: CANDESARTAN CILEXETIL\HYDROCHLOROTHIAZIDE
     Route: 048
  5. XARELTO [Suspect]
     Active Substance: RIVAROXABAN
     Indication: CEREBROVASCULAR ACCIDENT PROPHYLAXIS
     Dosage: 20MG, QD, TWO TO THREE MONTHS.
     Route: 048
     Dates: start: 201409, end: 20150105

REACTIONS (3)
  - Epistaxis [Recovered/Resolved]
  - Haemarthrosis [Unknown]
  - Synovitis [Recovered/Resolved]

NARRATIVE: CASE EVENT DATE: 20141113
